FAERS Safety Report 20184576 (Version 1)
Quarter: 2021Q4

REPORT INFORMATION
  Report Type: Spontaneous
  Country: US (occurrence: US)
  Receive Date: 20211214
  Receipt Date: 20211214
  Transmission Date: 20220303
  Serious: No
  Sender: FDA-Public Use
  Company Number: US-REGENERON PHARMACEUTICALS, INC.-2021-100124

PATIENT

DRUGS (1)
  1. EYLEA [Suspect]
     Active Substance: AFLIBERCEPT
     Indication: Diabetic retinopathy
     Dosage: UNK, EVERY 4 TO 6 WEEKS IN BOTH EYES FOR 3-4 YEARS
     Route: 031

REACTIONS (4)
  - Visual snow syndrome [Recovered/Resolved]
  - Visual impairment [Unknown]
  - Vitreous floaters [Recovered/Resolved]
  - Intraocular pressure increased [Unknown]
